FAERS Safety Report 17438771 (Version 2)
Quarter: 2020Q1

REPORT INFORMATION
  Report Type: Spontaneous
  Country: US (occurrence: US)
  Receive Date: 20200220
  Receipt Date: 20200312
  Transmission Date: 20200409
  Serious: Yes (Other)
  Sender: FDA-Public Use
  Company Number: US-AUROBINDO-AUR-APL-2020-008738

PATIENT
  Age: 68 Year
  Sex: Female
  Weight: 53.5 kg

DRUGS (2)
  1. MODAFINIL TABLETS USP 200MG [Suspect]
     Active Substance: MODAFINIL
     Indication: MENTAL IMPAIRMENT
     Dosage: 200 MILLIGRAM, TWO TIMES A DAY
  2. MODAFINIL TABLETS USP 200MG [Suspect]
     Active Substance: MODAFINIL
     Indication: FATIGUE
     Dosage: 100 MILLIGRAM
     Route: 065

REACTIONS (2)
  - Multiple sclerosis [Unknown]
  - Diverticulitis [Unknown]

NARRATIVE: CASE EVENT DATE: 201903
